FAERS Safety Report 20938689 (Version 1)
Quarter: 2022Q2

REPORT INFORMATION
  Report Type: Spontaneous
  Country: US (occurrence: None)
  Receive Date: 20220608
  Receipt Date: 20220608
  Transmission Date: 20220721
  Serious: Yes (unspecified)
  Sender: FDA-Public Use
  Company Number: None

PATIENT
  Age: 21 Year
  Sex: Male

DRUGS (1)
  1. HUMIRA [Suspect]
     Active Substance: ADALIMUMAB
     Indication: Crohn^s disease
     Dosage: OTHER FREQUENCY : EVERY 14 DAYS;?
     Route: 058
     Dates: start: 20220607, end: 20220607

REACTIONS (6)
  - Intentional dose omission [None]
  - Wrong technique in device usage process [None]
  - Oropharyngeal pain [None]
  - Dyspnoea [None]
  - Drug hypersensitivity [None]
  - Skin disorder [None]

NARRATIVE: CASE EVENT DATE: 20220607
